FAERS Safety Report 5148296-5 (Version None)
Quarter: 2006Q4

REPORT INFORMATION
  Report Type: 
  Country: None (occurrence: None)
  Receive Date: 20061106
  Receipt Date: 20061026
  Transmission Date: 20070319
  Serious: Yes (Death, Hospitalization)
  Sender: FDA-Public Use
  Company Number: HQWYE660827OCT06

PATIENT
  Age: 67 Year
  Sex: Male

DRUGS (6)
  1. CORDARONE [Suspect]
     Indication: ATRIAL FIBRILLATION
     Dosage: INITIALLY 300 MG/2 HOURS THEN 1000 MG/24 HOURS INTRAVENOUS
     Route: 042
     Dates: start: 20060918, end: 20060919
  2. SELOKEEN (METOPROLOL TARTRATE) [Concomitant]
  3. DIGITALIS CAP [Concomitant]
  4. ACETAMINOPHEN [Concomitant]
  5. LIFUROX (CEFUROXIME SODIUM) [Concomitant]
  6. INSULIN (INSULIN) [Concomitant]

REACTIONS (10)
  - BLOOD GLUCOSE INCREASED [None]
  - CARDIAC VALVE DISEASE [None]
  - CARDIOMEGALY [None]
  - CEREBRAL HAEMORRHAGE [None]
  - GLYCOSYLATED HAEMOGLOBIN INCREASED [None]
  - HAEMOGLOBIN DECREASED [None]
  - HEPATIC FAILURE [None]
  - INTERNATIONAL NORMALISED RATIO INCREASED [None]
  - LUNG INFILTRATION [None]
  - RED BLOOD CELL SEDIMENTATION RATE INCREASED [None]
